FAERS Safety Report 25834730 (Version 1)
Quarter: 2025Q3

REPORT INFORMATION
  Report Type: Spontaneous
  Country: US (occurrence: US)
  Receive Date: 20250923
  Receipt Date: 20250923
  Transmission Date: 20251021
  Serious: No
  Sender: LAVIPHARM
  Company Number: US-Lavipharm SA-2185100

PATIENT
  Sex: Male

DRUGS (1)
  1. CATAPRES-TTS [Suspect]
     Active Substance: CLONIDINE

REACTIONS (1)
  - Off label use [Unknown]
